FAERS Safety Report 12434117 (Version 1)
Quarter: 2016Q2

REPORT INFORMATION
  Report Type: Report from Study
  Country: US (occurrence: US)
  Receive Date: 20160603
  Receipt Date: 20160603
  Transmission Date: 20160815
  Serious: Yes (Hospitalization, Other)
  Sender: FDA-Public Use
  Company Number: US-EMD SERONO-7190918

PATIENT
  Age: 49 Year
  Sex: Female
  Weight: 68 kg

DRUGS (1)
  1. REBIF [Suspect]
     Active Substance: INTERFERON BETA-1A
     Indication: MULTIPLE SCLEROSIS
     Route: 058
     Dates: start: 20060213

REACTIONS (8)
  - Ovarian cyst [Unknown]
  - Breast cancer female [Recovering/Resolving]
  - Coronary artery occlusion [Unknown]
  - Multiple sclerosis relapse [Unknown]
  - Myocardial infarction [Recovered/Resolved]
  - Renal cyst [Unknown]
  - Blood cholesterol increased [Recovering/Resolving]
  - Pulmonary mass [Unknown]

NARRATIVE: CASE EVENT DATE: 2011
